FAERS Safety Report 4327137-X (Version None)
Quarter: 2004Q1

REPORT INFORMATION
  Report Type: 
  Country: None (occurrence: None)
  Receive Date: 20040330
  Receipt Date: 20040325
  Transmission Date: 20041129
  Serious: Yes (Other)
  Sender: FDA-Public Use
  Company Number: US-GLAXOSMITHKLINE-A0504601A

PATIENT
  Sex: Male

DRUGS (3)
  1. PAXIL [Suspect]
     Dosage: 10MG PER DAY
     Route: 048
  2. PAXIL CR [Suspect]
     Route: 048
  3. STRATTERA [Concomitant]

REACTIONS (4)
  - AGGRESSION [None]
  - CRYING [None]
  - DYSPNOEA [None]
  - SUICIDAL IDEATION [None]
